FAERS Safety Report 23608017 (Version 12)
Quarter: 2025Q1

REPORT INFORMATION
  Report Type: Spontaneous
  Country: CA (occurrence: CA)
  Receive Date: 20240307
  Receipt Date: 20250217
  Transmission Date: 20250409
  Serious: Yes (Death, Hospitalization, Other)
  Sender: PFIZER
  Company Number: CA-PFIZER INC-202400049076

PATIENT
  Age: 59 Year
  Sex: Female

DRUGS (22)
  1. ABRILADA [Suspect]
     Active Substance: ADALIMUMAB-AFZB
     Indication: Cardiac sarcoidosis
     Route: 058
     Dates: start: 2024
  2. ABRILADA [Suspect]
     Active Substance: ADALIMUMAB-AFZB
     Route: 058
     Dates: start: 20240223, end: 2024
  3. ACETAMINOPHEN [Concomitant]
     Active Substance: ACETAMINOPHEN
  4. AMIODARONE [Concomitant]
     Active Substance: AMIODARONE
  5. APIXABAN [Concomitant]
     Active Substance: APIXABAN
  6. ATORVASTATIN [Concomitant]
     Active Substance: ATORVASTATIN
  7. BISOPROLOL [Concomitant]
     Active Substance: BISOPROLOL
  8. CLONAZEPAM [Concomitant]
     Active Substance: CLONAZEPAM
  9. CLOTRIMAZOLE [Concomitant]
     Active Substance: CLOTRIMAZOLE
  10. DENOSUMAB [Concomitant]
     Active Substance: DENOSUMAB
  11. FERROUS SULFATE [Concomitant]
     Active Substance: FERROUS SULFATE
  12. FOLIC ACID [Concomitant]
     Active Substance: FOLIC ACID
     Route: 048
  13. FUROSEMIDE [Concomitant]
     Active Substance: FUROSEMIDE
  14. LEVOTHYROXINE [Concomitant]
     Active Substance: LEVOTHYROXINE
  15. METHOTREXATE [Concomitant]
     Active Substance: METHOTREXATE
     Indication: Cardiac sarcoidosis
     Dosage: 20 MG WEEKLY
     Route: 048
     Dates: start: 2020
  16. METHOTREXATE [Concomitant]
     Active Substance: METHOTREXATE
     Dosage: 15 MG WEEKLY
     Route: 048
     Dates: start: 20230708, end: 2024
  17. MEXILETINE [Concomitant]
     Active Substance: MEXILETINE
  18. NITROGLYCERIN [Concomitant]
     Active Substance: NITROGLYCERIN
  19. PREDNISONE [Concomitant]
     Active Substance: PREDNISONE
     Dosage: 30 MG, 1X/DAY
     Route: 048
  20. PANTOPRAZOLE [Concomitant]
     Active Substance: PANTOPRAZOLE
  21. SACUBITRIL\VALSARTAN [Concomitant]
     Active Substance: SACUBITRIL\VALSARTAN
  22. SPIRONOLACTONE [Concomitant]
     Active Substance: SPIRONOLACTONE

REACTIONS (8)
  - Death [Fatal]
  - Pulmonary oedema [Unknown]
  - Osteoporosis [Unknown]
  - Inflammation [Unknown]
  - Urinary tract infection [Unknown]
  - Malaise [Unknown]
  - Off label use [Unknown]
  - Product dose omission in error [Unknown]

NARRATIVE: CASE EVENT DATE: 20240101
